FAERS Safety Report 5247637-8 (Version None)
Quarter: 2007Q1

REPORT INFORMATION
  Report Type: 
  Country: None (occurrence: None)
  Receive Date: 20070220
  Receipt Date: 20070210
  Transmission Date: 20070707
  Serious: No
  Sender: FDA-Public Use
  Company Number: 236412

PATIENT
  Sex: Male
  Weight: 97.5 kg

DRUGS (7)
  1. XOLAIR [Suspect]
     Indication: ASTHMA
     Dosage: 300 MG, Q2W, UNK
     Dates: start: 20070205
  2. ALBUTEROL (ALBUTEROL/ALBUTEROL SULFATE) [Concomitant]
  3. ADVAIR DISKUS 100/50 [Concomitant]
  4. PREDNISONE TAB [Concomitant]
  5. RHINOCORT [Concomitant]
  6. CENTRUM SILVER (MINERALS NOS, MULTIVITAMINS NOS) [Concomitant]
  7. NEXIUM [Concomitant]

REACTIONS (2)
  - ALLERGIC GRANULOMATOUS ANGIITIS [None]
  - SINUSITIS [None]
